FAERS Safety Report 18440832 (Version 1)
Quarter: 2020Q4

REPORT INFORMATION
  Report Type: Spontaneous
  Country: US (occurrence: US)
  Receive Date: 20201029
  Receipt Date: 20201029
  Transmission Date: 20210114
  Serious: Yes (Hospitalization)
  Sender: FDA-Public Use
  Company Number: None

PATIENT
  Age: 71 Year
  Sex: Male

DRUGS (12)
  1. CALCITRIOL. [Concomitant]
     Active Substance: CALCITRIOL
  2. TELMISARTAN. [Concomitant]
     Active Substance: TELMISARTAN
  3. REPATHA [Suspect]
     Active Substance: EVOLOCUMAB
     Indication: HYPERCHOLESTEROLAEMIA
     Route: 058
     Dates: start: 20181113
  4. VALSARTAN. [Concomitant]
     Active Substance: VALSARTAN
  5. AMOX/K CLAV [Concomitant]
     Active Substance: AMOXICILLIN\CLAVULANATE POTASSIUM
  6. CARVEDILOL. [Concomitant]
     Active Substance: CARVEDILOL
  7. OXYCODONE [Concomitant]
     Active Substance: OXYCODONE
  8. CLONIDINE. [Concomitant]
     Active Substance: CLONIDINE
  9. OZEMPIC [Concomitant]
     Active Substance: SEMAGLUTIDE
  10. WARFARIN [Concomitant]
     Active Substance: WARFARIN
  11. MINOXIDIL. [Concomitant]
     Active Substance: MINOXIDIL
  12. FUROSEMIDE. [Concomitant]
     Active Substance: FUROSEMIDE

REACTIONS (4)
  - Disease complication [None]
  - Dialysis [None]
  - Therapy interrupted [None]
  - Renal cancer [None]

NARRATIVE: CASE EVENT DATE: 202009
